FAERS Safety Report 7991869-2 (Version None)
Quarter: 2011Q4

REPORT INFORMATION
  Report Type: 
  Country: None (occurrence: None)
  Receive Date: 20111219
  Receipt Date: 20111210
  Transmission Date: 20120403
  Serious: Yes (Hospitalization)
  Sender: FDA-Public Use
  Company Number: US-ABBOTT-11P-163-0883503-00

PATIENT
  Age: 36 Year
  Sex: Male

DRUGS (11)
  1. LISINOPRIL HYDROCHLORTHIAZID [Concomitant]
     Indication: HYPERTENSION
     Dosage: 20/12.5 MG
  2. METHOTREXATE [Concomitant]
     Indication: CROHN'S DISEASE
  3. CYMBACORT [Concomitant]
     Indication: CHRONIC OBSTRUCTIVE PULMONARY DISEASE
     Dosage: 1604.5
  4. FOLIC ACID [Concomitant]
     Indication: VITAMIN SUPPLEMENTATION
  5. HUMIRA [Suspect]
     Indication: CROHN'S DISEASE
     Dates: start: 20101101
  6. PAXIL [Concomitant]
     Indication: ANXIETY
  7. METFORMIN HCL [Concomitant]
     Indication: DIABETES MELLITUS
  8. ZOCOR [Concomitant]
     Indication: BLOOD CHOLESTEROL INCREASED
  9. REGLAN [Concomitant]
     Indication: PRODUCT USED FOR UNKNOWN INDICATION
     Dosage: 30 MINS BEFORE MEALS AND BEDTIME
  10. AGGRENOX [Concomitant]
     Indication: CEREBROVASCULAR ACCIDENT
     Dosage: 25/200 MG
  11. ELAVIL [Concomitant]
     Indication: ANXIETY
     Dosage: AT BEDTIME

REACTIONS (13)
  - DIZZINESS [None]
  - DYSPEPSIA [None]
  - ABDOMINAL PAIN [None]
  - VIRAL INFECTION [None]
  - HAEMATEMESIS [None]
  - VISUAL IMPAIRMENT [None]
  - HEMIPLEGIA [None]
  - INTESTINAL OBSTRUCTION [None]
  - TRANSIENT ISCHAEMIC ATTACK [None]
  - BLOOD TRIGLYCERIDES INCREASED [None]
  - WHITE BLOOD CELL COUNT INCREASED [None]
  - THROMBOSIS [None]
  - CEREBROVASCULAR ACCIDENT [None]
